FAERS Safety Report 18062757 (Version 2)
Quarter: 2020Q4

REPORT INFORMATION
  Report Type: Spontaneous
  Country: US (occurrence: US)
  Receive Date: 20200724
  Receipt Date: 20201116
  Transmission Date: 20210113
  Serious: Yes (Death, Other)
  Sender: FDA-Public Use
  Company Number: US-TEVA-2020-US-1805129

PATIENT
  Age: 75 Year
  Sex: Male

DRUGS (8)
  1. LOSARTAN LEGACY [Suspect]
     Active Substance: LOSARTAN
     Indication: HYPERTENSION
     Route: 065
     Dates: start: 20190228, end: 20190529
  2. ATORVASTATIN [Concomitant]
     Active Substance: ATORVASTATIN
     Indication: BLOOD CHOLESTEROL
  3. VALSARTAN SOLCO [Suspect]
     Active Substance: VALSARTAN
     Indication: HYPERTENSION
     Route: 065
     Dates: start: 20180404, end: 20180909
  4. LOSARTAN ACETRIS [Suspect]
     Active Substance: LOSARTAN
     Indication: HYPERTENSION
     Route: 065
     Dates: start: 20190621, end: 20190919
  5. FLONASE [Concomitant]
     Active Substance: FLUTICASONE PROPIONATE
  6. VITAMIN C [Concomitant]
     Active Substance: ASCORBIC ACID
     Dosage: DAILY
     Dates: end: 201911
  7. IRBESARTAN SOLCO [Suspect]
     Active Substance: IRBESARTAN
     Indication: HYPERTENSION
     Route: 065
     Dates: start: 20180815, end: 20190204
  8. GLIMEPIRIDE. [Concomitant]
     Active Substance: GLIMEPIRIDE
     Indication: DIABETES MELLITUS

REACTIONS (2)
  - Pancreatic carcinoma [Fatal]
  - Lung neoplasm malignant [Unknown]

NARRATIVE: CASE EVENT DATE: 20191129
